FAERS Safety Report 8061112-7 (Version None)
Quarter: 2012Q1

REPORT INFORMATION
  Report Type: 
  Country: None (occurrence: None)
  Receive Date: 20120120
  Receipt Date: 20110404
  Transmission Date: 20120608
  Serious: No
  Sender: FDA-Public Use
  Company Number: US-ALLERGAN-1104682US

PATIENT
  Age: 86 Year
  Sex: Female

DRUGS (3)
  1. LOTEMAX [Concomitant]
     Route: 047
  2. SYSTANE PF [Concomitant]
     Indication: DRY EYE
     Route: 047
  3. RESTASIS [Suspect]
     Indication: DRY EYE
     Dosage: 1 GTT, BID
     Route: 047
     Dates: start: 20110329

REACTIONS (1)
  - EYE IRRITATION [None]
